FAERS Safety Report 5644456-5 (Version None)
Quarter: 2008Q1

REPORT INFORMATION
  Report Type: 
  Country: None (occurrence: None)
  Receive Date: 20080229
  Receipt Date: 20070103
  Transmission Date: 20080703
  Serious: No
  Sender: FDA-Public Use
  Company Number: A0634590A

PATIENT
  Age: 56 Year
  Sex: Male

DRUGS (1)
  1. VALTREX [Suspect]
     Indication: HERPES VIRUS INFECTION
     Dosage: 500MG PER DAY
     Dates: start: 20060101

REACTIONS (2)
  - NAUSEA [None]
  - STOMACH DISCOMFORT [None]
